FAERS Safety Report 5567258-7 (Version None)
Quarter: 2007Q4

REPORT INFORMATION
  Report Type: 
  Country: None (occurrence: None)
  Receive Date: 20071219
  Receipt Date: 20071212
  Transmission Date: 20080405
  Serious: Yes (Hospitalization)
  Sender: FDA-Public Use
  Company Number: JP-ABBOTT-07P-087-0429924-00

PATIENT
  Sex: Male

DRUGS (12)
  1. KALETRA [Suspect]
     Indication: HIV INFECTION
     Route: 048
     Dates: start: 20060322, end: 20061020
  2. KALETRA [Suspect]
     Indication: HIV INFECTION
     Route: 048
     Dates: start: 20061113
  3. FLUNITRAZEPAM [Suspect]
     Indication: INSOMNIA
     Dates: start: 20070321, end: 20070321
  4. FLUNITRAZEPAM [Suspect]
     Route: 048
     Dates: start: 20061113
  5. LAMIVUDINE [Concomitant]
     Indication: HIV INFECTION
     Route: 048
     Dates: start: 20060322, end: 20061020
  6. LAMIVUDINE [Concomitant]
     Route: 048
     Dates: start: 20061113
  7. STAVUDINE [Concomitant]
     Indication: HIV INFECTION
     Route: 048
     Dates: start: 20060322, end: 20061020
  8. STAVUDINE [Concomitant]
     Route: 048
     Dates: start: 20061113
  9. ETIZOLAM [Concomitant]
     Indication: AFFECT LABILITY
     Route: 048
     Dates: start: 20061113, end: 20061218
  10. BROTIZOLAM [Concomitant]
     Indication: AFFECT LABILITY
     Route: 048
     Dates: start: 20061120, end: 20061204
  11. RISPERIDONE [Concomitant]
     Indication: AFFECT LABILITY
     Route: 048
     Dates: start: 20061129, end: 20070209
  12. CLONAZEPAM [Concomitant]
     Indication: AFFECT LABILITY
     Route: 048
     Dates: start: 20070319

REACTIONS (3)
  - SUICIDAL IDEATION [None]
  - SUICIDE ATTEMPT [None]
  - TONSILLITIS [None]
